FAERS Safety Report 15488400 (Version 1)
Quarter: 2018Q4

REPORT INFORMATION
  Report Type: Spontaneous
  Country: US (occurrence: US)
  Receive Date: 20181011
  Receipt Date: 20181011
  Transmission Date: 20190205
  Serious: No
  Sender: FDA-Public Use
  Company Number: US-ABBVIE-18K-163-2484809-00

PATIENT
  Sex: Male

DRUGS (5)
  1. VENCLEXTA [Suspect]
     Active Substance: VENETOCLAX
     Dosage: DAY 22 THROUGH 28
     Route: 048
     Dates: start: 20180702, end: 20180708
  2. VENCLEXTA [Suspect]
     Active Substance: VENETOCLAX
     Indication: MALIGNANT LYMPHOID NEOPLASM
     Dosage: DAY 15 THROUGH 21
     Route: 048
     Dates: start: 20180625, end: 20180701
  3. VENCLEXTA [Suspect]
     Active Substance: VENETOCLAX
     Indication: HODGKIN^S DISEASE
     Dosage: DAY 8 THROUGH 14
     Route: 048
     Dates: start: 20180618, end: 20180624
  4. VENCLEXTA [Suspect]
     Active Substance: VENETOCLAX
     Dosage: DIRECTIONS 4 TABLET(OF 100MG) ORAL DAILY
     Route: 048
     Dates: start: 201807, end: 2018
  5. VENCLEXTA [Suspect]
     Active Substance: VENETOCLAX
     Indication: MYELODYSPLASTIC SYNDROME
     Dosage: DAY 1 THROUGH 7
     Route: 048
     Dates: start: 20180611, end: 201806

REACTIONS (1)
  - Intentional product use issue [Unknown]

NARRATIVE: CASE EVENT DATE: 2018
